FAERS Safety Report 17782428 (Version 1)
Quarter: 2020Q2

REPORT INFORMATION
  Report Type: Spontaneous
  Country: IE (occurrence: IE)
  Receive Date: 20200513
  Receipt Date: 20200513
  Transmission Date: 20200714
  Serious: Yes (Hospitalization, Other)
  Sender: FDA-Public Use
  Company Number: NVSC2019IE002599

PATIENT
  Age: 30 Year
  Sex: Female

DRUGS (2)
  1. ADALIMUMAB [Suspect]
     Active Substance: ADALIMUMAB
     Indication: HIDRADENITIS
     Dosage: 40 MG, QW
     Route: 058
  2. ADALIMUMAB [Suspect]
     Active Substance: ADALIMUMAB
     Dosage: 160 MG, QW
     Route: 058

REACTIONS (6)
  - Hidradenitis [Recovered/Resolved]
  - Product use in unapproved indication [Unknown]
  - Impaired fasting glucose [Unknown]
  - Hodgkin^s disease [Unknown]
  - Mood altered [Unknown]
  - Therapeutic response decreased [Unknown]
